FAERS Safety Report 24028427 (Version 1)
Quarter: 2024Q2

REPORT INFORMATION
  Report Type: Spontaneous
  Country: US (occurrence: US)
  Receive Date: 20240628
  Receipt Date: 20240628
  Transmission Date: 20240715
  Serious: Yes (Other)
  Sender: FDA-Public Use
  Company Number: US-MYLANLABS-2024M1058134

PATIENT
  Age: 67 Year
  Sex: Male

DRUGS (6)
  1. LEUCOVORIN [Suspect]
     Active Substance: LEUCOVORIN\LEUCOVORIN CALCIUM
     Indication: Colorectal adenocarcinoma
     Dosage: UNK UNK, CYCLE, UNDER FOLFOX REGIMEN 9 CYCLE
     Route: 065
     Dates: start: 202202, end: 202207
  2. LEUCOVORIN [Suspect]
     Active Substance: LEUCOVORIN\LEUCOVORIN CALCIUM
     Dosage: UNK, UNDER FOLFIRI REGIMEN
     Route: 065
     Dates: start: 202208, end: 202304
  3. OXALIPLATIN [Suspect]
     Active Substance: OXALIPLATIN
     Indication: Colorectal adenocarcinoma
     Dosage: UNK, CYCLE, UNDER FOLFOX REGIMEN FOR 9 CYCLE
     Route: 065
     Dates: start: 202202, end: 202207
  4. FLUOROURACIL [Suspect]
     Active Substance: FLUOROURACIL
     Indication: Colorectal adenocarcinoma
     Dosage: UNK, CYCLE, UNDER FOLFOX REGIMEN 9CYCLES
     Route: 065
     Dates: start: 202202, end: 202207
  5. FLUOROURACIL [Suspect]
     Active Substance: FLUOROURACIL
     Dosage: UNK, UNDER FOLFIRI REGIMEN
     Route: 065
     Dates: start: 202208, end: 202304
  6. IRINOTECAN [Suspect]
     Active Substance: IRINOTECAN
     Indication: Colorectal adenocarcinoma
     Dosage: UNK, UNDER FOLFIRI REGIMEN
     Route: 065
     Dates: start: 202208, end: 202304

REACTIONS (2)
  - Disease progression [Unknown]
  - Drug ineffective [Unknown]
